FAERS Safety Report 8094248-5 (Version None)
Quarter: 2012Q1

REPORT INFORMATION
  Report Type: 
  Country: None (occurrence: None)
  Receive Date: 20120125
  Receipt Date: 20120113
  Transmission Date: 20120608
  Serious: Yes (Death, Hospitalization)
  Sender: FDA-Public Use
  Company Number: 2012IN000042

PATIENT
  Age: 78 Year
  Sex: Male

DRUGS (1)
  1. JAKAFI [Suspect]
     Indication: MYELOFIBROSIS
     Dosage: 5 MG, BID, ORAL
     Route: 048
     Dates: start: 20111222

REACTIONS (3)
  - MYELOFIBROSIS [None]
  - ARRHYTHMIA [None]
  - DISEASE PROGRESSION [None]
